FAERS Safety Report 25385508 (Version 1)
Quarter: 2025Q2

REPORT INFORMATION
  Report Type: Spontaneous
  Country: PR (occurrence: PR)
  Receive Date: 20250602
  Receipt Date: 20250602
  Transmission Date: 20250717
  Serious: No
  Sender: ABBVIE
  Company Number: PR-ABBVIE-6301070

PATIENT
  Sex: Female

DRUGS (1)
  1. QULIPTA [Suspect]
     Active Substance: ATOGEPANT
     Indication: Migraine
     Route: 048

REACTIONS (2)
  - Paraesthesia [Unknown]
  - Nausea [Unknown]
